FAERS Safety Report 9285633 (Version 1)
Quarter: 2013Q2

REPORT INFORMATION
  Report Type: Spontaneous
  Country: US (occurrence: None)
  Receive Date: 20130510
  Receipt Date: 20130510
  Transmission Date: 20140414
  Serious: No
  Sender: FDA-Public Use
  Company Number: None

PATIENT
  Age: 30 Year
  Sex: Female
  Weight: 106.6 kg

DRUGS (2)
  1. ONDANSETRON [Suspect]
     Indication: NAUSEA
     Route: 048
     Dates: start: 20120608, end: 20130410
  2. HYDROXYZINE PAMOATE [Suspect]
     Indication: PRURITUS
     Dosage: 1 TAB + 2 @ HS
     Route: 048
     Dates: start: 20120411, end: 20130508

REACTIONS (2)
  - Nausea [None]
  - Product coating issue [None]
